FAERS Safety Report 8053826-X (Version None)
Quarter: 2011Q4

REPORT INFORMATION
  Report Type: 
  Country: None (occurrence: None)
  Receive Date: 20111213
  Receipt Date: 20110922
  Transmission Date: 20120403
  Serious: No
  Sender: FDA-Public Use
  Company Number: 2011SP045022

PATIENT
  Age: 64 Year
  Sex: Male

DRUGS (3)
  1. SAPHRIS [Suspect]
     Indication: BIPOLAR DISORDER
  2. LISINOPRIL [Concomitant]
  3. TENORMIN [Concomitant]

REACTIONS (1)
  - DIZZINESS [None]
